FAERS Safety Report 7645264-6 (Version None)
Quarter: 2011Q3

REPORT INFORMATION
  Report Type: 
  Country: None (occurrence: None)
  Receive Date: 20110729
  Receipt Date: 20101228
  Transmission Date: 20111222
  Serious: No
  Sender: FDA-Public Use
  Company Number: US-MUTUAL PHARMACEUTICAL COMPANY, INC.-2010P1003596

PATIENT
  Sex: Female
  Weight: 84.37 kg

DRUGS (2)
  1. SPIRONOLACTONE [Suspect]
     Indication: ROSACEA
     Route: 048
     Dates: start: 20101222, end: 20101223
  2. DORYX [Concomitant]
     Dates: start: 20101214

REACTIONS (5)
  - ACNE [None]
  - OFF LABEL USE [None]
  - PRURITUS [None]
  - DERMATITIS [None]
  - PAPULE [None]
